FAERS Safety Report 10171943 (Version 1)
Quarter: 2014Q2

REPORT INFORMATION
  Report Type: Spontaneous
  Country: BE (occurrence: BE)
  Receive Date: 20140515
  Receipt Date: 20140515
  Transmission Date: 20141212
  Serious: Yes (Hospitalization)
  Sender: FDA-Public Use
  Company Number: BE-PFIZER INC-2014131924

PATIENT
  Sex: Female

DRUGS (1)
  1. PANTOMED [Suspect]
     Dosage: 40 MG, 1X/DAY
     Route: 048
     Dates: start: 20120604, end: 20120816

REACTIONS (3)
  - Decreased appetite [Recovered/Resolved]
  - Nausea [Recovered/Resolved]
  - Weight decreased [Recovered/Resolved]
